FAERS Safety Report 22258712 (Version 1)
Quarter: 2023Q2

REPORT INFORMATION
  Report Type: Spontaneous
  Country: US (occurrence: None)
  Receive Date: 20230425
  Receipt Date: 20230425
  Transmission Date: 20230722
  Serious: No
  Sender: FDA-Public Use
  Company Number: None

PATIENT
  Age: 42 Year
  Sex: Female

DRUGS (3)
  1. HUMIRA [Suspect]
     Active Substance: ADALIMUMAB
     Indication: Hidradenitis
     Dosage: OTHER FREQUENCY : DAY 1;?INJECT 160MG (4 PENS) SUBCUTANEOUSLY ON DAY 1, 80MG (2?PENS) ON DAY 15, THE
     Route: 058
     Dates: start: 202304
  2. HUMIRA [Suspect]
     Active Substance: ADALIMUMAB
     Indication: Seborrhoeic dermatitis
     Dosage: OTHER FREQUENCY : DAY 15;?
     Route: 058
  3. HUMIRA [Suspect]
     Active Substance: ADALIMUMAB
     Dosage: FREQUENCY : WEEKLY;?
     Dates: start: 202304

REACTIONS (4)
  - Illness [None]
  - Mastitis [None]
  - Breast discharge [None]
  - Headache [None]
